FAERS Safety Report 21335095 (Version 4)
Quarter: 2023Q1

REPORT INFORMATION
  Report Type: Spontaneous
  Country: JP (occurrence: JP)
  Receive Date: 20220914
  Receipt Date: 20230302
  Transmission Date: 20230418
  Serious: Yes (Other)
  Sender: FDA-Public Use
  Company Number: JP-BEH-2022149726

PATIENT
  Age: 84 Year
  Sex: Male

DRUGS (2)
  1. ALBUMINAR-25 [Suspect]
     Active Substance: ALBUMIN HUMAN
     Dosage: 2 VIALS (V)
     Route: 042
  2. ALBUMINAR-25 [Suspect]
     Active Substance: ALBUMIN HUMAN
     Dosage: 2 VIALS (V)
     Route: 042

REACTIONS (3)
  - Hepatitis C virus test positive [Unknown]
  - Suspected transmission of an infectious agent via product [Unknown]
  - Hepatic function abnormal [Unknown]

NARRATIVE: CASE EVENT DATE: 20220825
